FAERS Safety Report 8127980-5 (Version None)
Quarter: 2012Q1

REPORT INFORMATION
  Report Type: 
  Country: None (occurrence: None)
  Receive Date: 20120210
  Receipt Date: 20111115
  Transmission Date: 20120608
  Serious: No
  Sender: FDA-Public Use
  Company Number: US-GLAXOSMITHKLINE-A0953136A

PATIENT
  Age: 44 Year
  Sex: Male

DRUGS (3)
  1. PAXIL [Suspect]
     Indication: POST-TRAUMATIC STRESS DISORDER
     Dosage: 37.5MG PER DAY
     Route: 048
  2. PAROXETINE [Suspect]
     Indication: POST-TRAUMATIC STRESS DISORDER
     Dosage: 37.5MG PER DAY
     Route: 048
  3. PROPECIA [Concomitant]

REACTIONS (2)
  - FEELING ABNORMAL [None]
  - WITHDRAWAL SYNDROME [None]
